FAERS Safety Report 12159636 (Version 1)
Quarter: 2016Q1

REPORT INFORMATION
  Report Type: Spontaneous
  Country: US (occurrence: None)
  Receive Date: 20160307
  Receipt Date: 20160307
  Transmission Date: 20160526
  Serious: Yes (Other)
  Sender: FDA-Public Use
  Company Number: None

PATIENT

DRUGS (1)
  1. PHYTONADIONE 1MG PER 0.5ML INTERNATIONAL MEDICATIONS SYSTEMS [Suspect]
     Active Substance: PHYTONADIONE

REACTIONS (2)
  - Injury associated with device [None]
  - Needle issue [None]
